FAERS Safety Report 8501845-9 (Version None)
Quarter: 2012Q3

REPORT INFORMATION
  Report Type: 
  Country: None (occurrence: None)
  Receive Date: 20120711
  Receipt Date: 20120626
  Transmission Date: 20120928
  Serious: Yes (Other)
  Sender: FDA-Public Use
  Company Number: PHHY2012FR058691

PATIENT
  Sex: Male

DRUGS (7)
  1. PARLODEL [Suspect]
     Dosage: 16.25 MG, DAILY
     Route: 048
     Dates: start: 20090801, end: 20100501
  2. PARLODEL [Suspect]
     Indication: PARKINSON'S DISEASE
     Dosage: 3.75-25 MG, DAILY
     Route: 048
     Dates: start: 20020201, end: 20090801
  3. PRAMIPEXOLE DIHYDROCHLORIDE [Suspect]
     Dosage: 2.36 MG, DAILY
     Route: 048
     Dates: start: 20120301
  4. PRAMIPEXOLE DIHYDROCHLORIDE [Suspect]
     Dosage: 2.88 MG, DAILY
     Route: 048
     Dates: start: 20101001, end: 20120301
  5. PRAMIPEXOLE DIHYDROCHLORIDE [Suspect]
     Indication: PARKINSON'S DISEASE
     Dosage: 2.82 MG, DAILY
     Route: 048
     Dates: start: 20100501, end: 20101001
  6. MODOPAR [Concomitant]
     Dosage: 1312 MG, DAILY
     Dates: start: 19991001, end: 20120301
  7. AZILECT [Concomitant]
     Dosage: 1 MG, DAILY
     Dates: start: 20110301

REACTIONS (4)
  - IMPULSE-CONTROL DISORDER [None]
  - SOMNOLENCE [None]
  - PATHOLOGICAL GAMBLING [None]
  - COMPULSIVE SHOPPING [None]
